FAERS Safety Report 4438338-4 (Version None)
Quarter: 2004Q3

REPORT INFORMATION
  Report Type: 
  Country: None (occurrence: None)
  Receive Date: 20040831
  Receipt Date: 20040720
  Transmission Date: 20050211
  Serious: No
  Sender: FDA-Public Use
  Company Number: US-GLAXOSMITHKLINE-A0519070A

PATIENT
  Age: 21 Year
  Sex: Male

DRUGS (3)
  1. WELLBUTRIN [Suspect]
     Indication: DEPRESSION
     Dosage: 150MG PER DAY
     Route: 048
     Dates: start: 20040501
  2. WELLBUTRIN [Suspect]
     Dosage: 200MG PER DAY
     Route: 048
     Dates: end: 20040601
  3. NO CONCURRENT MEDICATION [Concomitant]

REACTIONS (4)
  - DYSPNOEA [None]
  - PALPITATIONS [None]
  - THROAT TIGHTNESS [None]
  - VISUAL DISTURBANCE [None]
